FAERS Safety Report 9418709 (Version 1)
Quarter: 2013Q3

REPORT INFORMATION
  Report Type: Spontaneous
  Country: US (occurrence: US)
  Receive Date: 20130725
  Receipt Date: 20130725
  Transmission Date: 20140515
  Serious: Yes (Hospitalization)
  Sender: FDA-Public Use
  Company Number: US-CELGENEUS-163-21880-13051654

PATIENT
  Age: 73 Year
  Sex: Female
  Weight: 54.03 kg

DRUGS (23)
  1. REVLIMID [Suspect]
     Indication: PLASMA CELL MYELOMA
     Dosage: 25 MILLIGRAM
     Route: 048
     Dates: start: 20130412
  2. DULCOLAX [Concomitant]
     Indication: CONSTIPATION
     Route: 065
  3. ZOMETA [Concomitant]
     Indication: HYPERCALCAEMIA
     Route: 041
  4. DECADRON [Concomitant]
     Indication: PLASMA CELL MYELOMA
     Dosage: 40 MILLIGRAM
     Route: 048
     Dates: start: 20130412
  5. AMBIEN [Concomitant]
     Indication: PRODUCT USED FOR UNKNOWN INDICATION
     Route: 048
  6. PERCOCET [Concomitant]
     Indication: PAIN
     Dosage: 5/325
     Route: 048
  7. PROTONIX [Concomitant]
     Indication: PRODUCT USED FOR UNKNOWN INDICATION
     Dosage: 40 MILLIGRAM
     Route: 048
  8. REMERON [Concomitant]
     Indication: BIPOLAR DISORDER
     Route: 048
  9. ALBUTEROL [Concomitant]
     Indication: PRODUCT USED FOR UNKNOWN INDICATION
     Route: 065
  10. AMLODIPINE [Concomitant]
     Indication: PRODUCT USED FOR UNKNOWN INDICATION
     Dosage: 5 MILLIGRAM
     Route: 065
  11. ATROVENT [Concomitant]
     Indication: PRODUCT USED FOR UNKNOWN INDICATION
     Route: 055
  12. METOPROLOL [Concomitant]
     Indication: PRODUCT USED FOR UNKNOWN INDICATION
     Dosage: 50 MILLIGRAM
     Route: 065
  13. MIRTAZAPINE [Concomitant]
     Indication: PRODUCT USED FOR UNKNOWN INDICATION
     Route: 065
  14. TRAZODONE [Concomitant]
     Indication: BIPOLAR DISORDER
     Route: 065
  15. ANCEF [Concomitant]
     Indication: URINARY TRACT INFECTION
     Route: 041
     Dates: start: 201304
  16. GENTAMICIN [Concomitant]
     Indication: URINARY TRACT INFECTION
     Route: 065
     Dates: start: 201304
  17. GENTAMICIN [Concomitant]
     Dosage: 1 DOSE
     Route: 065
     Dates: start: 20130418
  18. KEFLEX [Concomitant]
     Indication: URINARY TRACT INFECTION
     Dosage: 2000 MILLIGRAM
     Route: 065
     Dates: start: 20130402
  19. IPRATROPIUM [Concomitant]
     Indication: PRODUCT USED FOR UNKNOWN INDICATION
     Route: 065
  20. PROAIR [Concomitant]
     Indication: DYSPNOEA
     Route: 065
  21. LORAZEPAM [Concomitant]
     Indication: ANXIETY
     Dosage: 6 MILLIGRAM
     Route: 065
  22. NORVASC [Concomitant]
     Indication: PRODUCT USED FOR UNKNOWN INDICATION
     Dosage: 5 MILLIGRAM
     Route: 065
  23. LITHIUM [Concomitant]
     Indication: PRODUCT USED FOR UNKNOWN INDICATION
     Route: 065

REACTIONS (5)
  - Systemic inflammatory response syndrome [Recovered/Resolved]
  - Urinary tract infection [Recovered/Resolved]
  - Renal failure acute [Recovered/Resolved]
  - Dehydration [Recovered/Resolved]
  - Sepsis [Recovered/Resolved]
